FAERS Safety Report 9516682 (Version 1)
Quarter: 2013Q3

REPORT INFORMATION
  Report Type: Spontaneous
  Country: US (occurrence: None)
  Receive Date: 20130910
  Receipt Date: 20130910
  Transmission Date: 20140515
  Serious: Yes (Other)
  Sender: FDA-Public Use
  Company Number: None

PATIENT
  Age: 37 Year
  Sex: Female
  Weight: 70 kg

DRUGS (2)
  1. CINRYZE [Suspect]
     Indication: PROPHYLAXIS
  2. CINRYZE [Suspect]
     Indication: PREGNANCY

REACTIONS (3)
  - Hepatitis C virus test positive [None]
  - Suspected transmission of an infectious agent via product [None]
  - Exposure during pregnancy [None]
